FAERS Safety Report 7913839-2 (Version None)
Quarter: 2011Q4

REPORT INFORMATION
  Report Type: 
  Country: None (occurrence: None)
  Receive Date: 20111114
  Receipt Date: 20111114
  Transmission Date: 20120403
  Serious: Yes (Hospitalization, Other)
  Sender: FDA-Public Use
  Company Number: None

PATIENT
  Age: 54 Year
  Sex: Male
  Weight: 114.3065 kg

DRUGS (6)
  1. ACTOS [Concomitant]
  2. GLIMEPIRIDE [Concomitant]
  3. LEVEMIR [Suspect]
     Indication: DIABETES MELLITUS
     Dosage: INJECTION INTO STOMACH
     Route: 058
     Dates: start: 20101001, end: 20111001
  4. LOSARTAN POTASSIUM AND HYDROCHLOROTHIAZIDE [Concomitant]
  5. METFORMIN HCL [Concomitant]
  6. CRESTOR [Concomitant]

REACTIONS (2)
  - PRODUCT QUALITY ISSUE [None]
  - INJECTION SITE PAIN [None]
